FAERS Safety Report 5493185-X (Version None)
Quarter: 2007Q4

REPORT INFORMATION
  Report Type: 
  Country: None (occurrence: None)
  Receive Date: 20071023
  Receipt Date: 20071018
  Transmission Date: 20080405
  Serious: Yes (Other)
  Sender: FDA-Public Use
  Company Number: A0686909A

PATIENT
  Age: 59 Year
  Sex: Female

DRUGS (2)
  1. AVANDIA [Suspect]
     Dosage: 8MG PER DAY
     Route: 048
     Dates: start: 20061001
  2. BLOOD PRESSURE MEDICATION [Concomitant]

REACTIONS (9)
  - ARTHRALGIA [None]
  - BLOOD GLUCOSE INCREASED [None]
  - DYSPNOEA [None]
  - MYALGIA [None]
  - PAIN [None]
  - PAIN IN EXTREMITY [None]
  - RASH [None]
  - SKIN BURNING SENSATION [None]
  - SUICIDAL IDEATION [None]
